FAERS Safety Report 6282704-1 (Version None)
Quarter: 2009Q3

REPORT INFORMATION
  Report Type: 
  Country: None (occurrence: None)
  Receive Date: 20090722
  Receipt Date: 20090722
  Transmission Date: 20100115
  Serious: Yes (Hospitalization)
  Sender: FDA-Public Use
  Company Number: None

PATIENT
  Age: 36 Year
  Sex: Male

DRUGS (2)
  1. METOLAZONE [Suspect]
     Indication: GENERALISED OEDEMA
     Dosage: 5 MG PRN PO
     Route: 048
     Dates: start: 20090331
  2. BUMETANIDE [Suspect]
     Indication: GENERALISED OEDEMA
     Dosage: 3 MG TID PO
     Route: 048
     Dates: start: 20090331

REACTIONS (1)
  - HYPOKALAEMIA [None]
